FAERS Safety Report 5844501-8 (Version None)
Quarter: 2008Q3

REPORT INFORMATION
  Report Type: 
  Country: None (occurrence: None)
  Receive Date: 20080811
  Receipt Date: 20080804
  Transmission Date: 20090109
  Serious: Yes (Life-Threatening, Hospitalization)
  Sender: FDA-Public Use
  Company Number: 2008SP013928

PATIENT
  Age: 31 Year
  Sex: Male
  Weight: 77 kg

DRUGS (6)
  1. PEG-INTRON [Suspect]
     Indication: HEPATITIS C
     Dosage: 120 MCG;QW;SC
     Route: 058
     Dates: start: 20080616, end: 20080630
  2. REBETOL [Suspect]
     Indication: HEPATITIS C
     Dosage: 800 MG;QD;PO
     Route: 048
     Dates: start: 20080616, end: 20080703
  3. LANSOPRAZOLE [Concomitant]
  4. LOXONIN [Concomitant]
  5. LORAMET [Concomitant]
  6. URSO 250 [Concomitant]

REACTIONS (9)
  - AFFECT LABILITY [None]
  - DEPRESSED MOOD [None]
  - EMOTIONAL DISORDER [None]
  - FAMILY STRESS [None]
  - IRRITABILITY [None]
  - MULTIPLE DRUG OVERDOSE INTENTIONAL [None]
  - PNEUMONIA ASPIRATION [None]
  - SUICIDE ATTEMPT [None]
  - WRONG DRUG ADMINISTERED [None]
